FAERS Safety Report 22613159 (Version 1)
Quarter: 2023Q2

REPORT INFORMATION
  Report Type: Report from Study
  Country: CA (occurrence: CA)
  Receive Date: 20230618
  Receipt Date: 20230618
  Transmission Date: 20230721
  Serious: Yes (Other)
  Sender: FDA-Public Use
  Company Number: CA-CELLTRION INC.-2023CA012341

PATIENT

DRUGS (1)
  1. TRUXIMA [Suspect]
     Active Substance: RITUXIMAB-ABBS
     Indication: Thrombocytopenia
     Dosage: 700 MG IV WEEKLY X 4 WEEKS (375MG/M2)
     Route: 042

REACTIONS (2)
  - Thrombocytopenia [Unknown]
  - Off label use [Unknown]
